FAERS Safety Report 7638339-9 (Version None)
Quarter: 2011Q3

REPORT INFORMATION
  Report Type: 
  Country: None (occurrence: None)
  Receive Date: 20110727
  Receipt Date: 20110725
  Transmission Date: 20111222
  Serious: Yes (Other)
  Sender: FDA-Public Use
  Company Number: US-ROXANE LABORATORIES, INC.-2011-RO-01058RO

PATIENT
  Age: 50 Year
  Sex: Male
  Weight: 91 kg

DRUGS (3)
  1. ALPRAZOLAM [Suspect]
  2. METHADON AMIDONE HCL TAB [Suspect]
  3. COCAINE [Suspect]

REACTIONS (4)
  - INTENTIONAL DRUG MISUSE [None]
  - ACCIDENT [None]
  - DRUG SCREEN POSITIVE [None]
  - DRUG LEVEL ABOVE THERAPEUTIC [None]
